FAERS Safety Report 5176381-0 (Version None)
Quarter: 2006Q4

REPORT INFORMATION
  Report Type: 
  Country: None (occurrence: None)
  Receive Date: 20061215
  Receipt Date: 20061011
  Transmission Date: 20070319
  Serious: Yes (Hospitalization)
  Sender: FDA-Public Use
  Company Number: FR-ROCHE-467110

PATIENT
  Age: 32 Year
  Sex: Male
  Weight: 64 kg

DRUGS (1)
  1. PEGASYS [Suspect]
     Dosage: FORM REPORTED AS INJECTABLE SOLUTION.
     Route: 058
     Dates: start: 20060215, end: 20061004

REACTIONS (5)
  - INSOMNIA [None]
  - PANCREATITIS [None]
  - PURPURA [None]
  - RADICULAR PAIN [None]
  - THERAPY NON-RESPONDER [None]
